FAERS Safety Report 21865231 (Version 2)
Quarter: 2024Q2

REPORT INFORMATION
  Report Type: Report from Study
  Country: CZ (occurrence: CZ)
  Receive Date: 20230116
  Receipt Date: 20240514
  Transmission Date: 20240716
  Serious: Yes (Hospitalization)
  Sender: FDA-Public Use
  Company Number: CZ-ABBVIE-4268511

PATIENT
  Age: 50 Year
  Sex: Male

DRUGS (1)
  1. HUMIRA [Suspect]
     Active Substance: ADALIMUMAB
     Indication: Psoriatic arthropathy
     Route: 058
     Dates: start: 20211217, end: 20220416

REACTIONS (3)
  - Pustule [Recovering/Resolving]
  - Psoriasis [Recovering/Resolving]
  - Streptococcus test positive [Recovering/Resolving]

NARRATIVE: CASE EVENT DATE: 20220405
